FAERS Safety Report 25247340 (Version 2)
Quarter: 2025Q2

REPORT INFORMATION
  Report Type: Spontaneous
  Country: US (occurrence: US)
  Receive Date: 20250428
  Receipt Date: 20250513
  Transmission Date: 20250717
  Serious: No
  Sender: BAUSCH AND LOMB
  Company Number: US-MLMSERVICE-20250417-PI483071-00237-1

PATIENT
  Age: 35 Year
  Sex: Male

DRUGS (3)
  1. NIFEDIPINE [Suspect]
     Active Substance: NIFEDIPINE
     Indication: Product used for unknown indication
     Route: 065
  2. HYDROMORPHONE [Concomitant]
     Active Substance: HYDROMORPHONE
     Indication: Analgesic therapy
  3. FENTANYL [Concomitant]
     Active Substance: FENTANYL
     Indication: Analgesic therapy

REACTIONS (1)
  - Product residue present [Unknown]
